FAERS Safety Report 9261619 (Version 2)
Quarter: 2013Q2

REPORT INFORMATION
  Report Type: Spontaneous
  Country: DE (occurrence: DE)
  Receive Date: 20130429
  Receipt Date: 20130507
  Transmission Date: 20140414
  Serious: Yes (Hospitalization)
  Sender: FDA-Public Use
  Company Number: DE-PFIZER INC-2013130075

PATIENT
  Age: 25 Year
  Sex: Female
  Weight: 60 kg

DRUGS (5)
  1. PANTOZOL [Suspect]
     Dosage: 20 DF
     Route: 048
     Dates: start: 20130419, end: 20130419
  2. IBUPROFEN [Suspect]
     Dosage: 1.6 G, SINGLE
     Route: 048
     Dates: start: 20130419, end: 20130419
  3. UNACID [Suspect]
     Dosage: TOOK 10 TABLETS
  4. NAPROXEN [Suspect]
     Dosage: 4.75 G, SINGLE
     Route: 048
     Dates: start: 20130419, end: 20130419
  5. DOLORMIN [Suspect]
     Dosage: TOOK 19 TABLETS

REACTIONS (3)
  - Suicidal ideation [Unknown]
  - Intentional overdose [Unknown]
  - Nausea [Recovered/Resolved]
